FAERS Safety Report 9345894 (Version 1)
Quarter: 2013Q2

REPORT INFORMATION
  Report Type: Spontaneous
  Country: HR (occurrence: HR)
  Receive Date: 20130613
  Receipt Date: 20130613
  Transmission Date: 20140414
  Serious: Yes (Hospitalization)
  Sender: FDA-Public Use
  Company Number: HR-PFIZER INC-2013173229

PATIENT
  Age: 40 Year
  Sex: Male

DRUGS (6)
  1. ZELDOX [Suspect]
     Dosage: 60 MG, 1X/DAY
     Route: 048
     Dates: start: 201010, end: 201103
  2. RISSET [Suspect]
     Dosage: 2 MG, 1X/DAY
     Route: 048
     Dates: start: 20100811, end: 201010
  3. NOZINAN [Suspect]
     Indication: INSOMNIA
     Dosage: 50 MG, 1X/DAY
     Route: 048
     Dates: start: 201012, end: 201102
  4. SOLIAN [Concomitant]
     Dosage: 400 MG, 1X/DAY
     Route: 048
     Dates: start: 201101, end: 201103
  5. NOVOMIX [Concomitant]
     Indication: DIABETES MELLITUS
     Dosage: UNK
     Route: 058
     Dates: start: 20111215
  6. AKINETON [Concomitant]
     Indication: EXTRAPYRAMIDAL DISORDER
     Dosage: UNK
     Route: 048
     Dates: start: 2010, end: 201103

REACTIONS (32)
  - Muscle rigidity [Recovered/Resolved]
  - Restlessness [Recovered/Resolved]
  - Akathisia [Recovered/Resolved]
  - Memory impairment [Recovered/Resolved]
  - Diabetes mellitus [Not Recovered/Not Resolved]
  - Polyuria [Unknown]
  - Ketoacidosis [Recovered/Resolved]
  - Hearing impaired [Recovered/Resolved]
  - Dizziness [Recovered/Resolved]
  - Somnolence [Recovered/Resolved]
  - Nausea [Recovered/Resolved]
  - Tremor [Recovered/Resolved]
  - Insomnia [Unknown]
  - Nightmare [Recovered/Resolved]
  - Insomnia [Recovered/Resolved]
  - Speech disorder [Recovered/Resolved]
  - Aphasia [Recovered/Resolved]
  - Dysarthria [Recovered/Resolved]
  - Fatigue [Unknown]
  - Weight increased [Unknown]
  - Apathy [Recovered/Resolved]
  - Erectile dysfunction [Not Recovered/Not Resolved]
  - Dyskinesia [Recovered/Resolved]
  - Myokymia [Not Recovered/Not Resolved]
  - Hyposmia [Unknown]
  - Vision blurred [Unknown]
  - Abdominal pain upper [Unknown]
  - Mobility decreased [Unknown]
  - Metabolic syndrome [Not Recovered/Not Resolved]
  - Polydipsia [Unknown]
  - Hyperphagia [Unknown]
  - Blood glucose increased [Unknown]
